FAERS Safety Report 5477035-3 (Version None)
Quarter: 2007Q4

REPORT INFORMATION
  Report Type: 
  Country: None (occurrence: None)
  Receive Date: 20071002
  Receipt Date: 20071002
  Transmission Date: 20080405
  Serious: Yes (Other)
  Sender: FDA-Public Use
  Company Number: None

PATIENT
  Age: 57 Year
  Sex: Female
  Weight: 70.3075 kg

DRUGS (4)
  1. CHANTIX [Suspect]
     Indication: SMOKING CESSATION THERAPY
     Dosage: 1 MG BID PO
     Route: 048
     Dates: start: 20070511, end: 20070928
  2. LEXAPRO [Concomitant]
  3. LEVOXYL [Concomitant]
  4. PRILOSEC [Concomitant]

REACTIONS (2)
  - ABNORMAL BEHAVIOUR [None]
  - SHOPLIFTING [None]
